FAERS Safety Report 18602589 (Version 2)
Quarter: 2021Q2

REPORT INFORMATION
  Report Type: Spontaneous
  Country: US (occurrence: US)
  Receive Date: 20201211
  Receipt Date: 20210610
  Transmission Date: 20210717
  Serious: No
  Sender: FDA-Public Use
  Company Number: US-GLAXOSMITHKLINE-US2020237611

PATIENT
  Sex: Male

DRUGS (2)
  1. ANORO ELLIPTA [Suspect]
     Active Substance: UMECLIDINIUM BROMIDE\VILANTEROL TRIFENATATE
     Indication: CHRONIC OBSTRUCTIVE PULMONARY DISEASE
     Dosage: 1 PUFF(S), QD
     Route: 055
     Dates: end: 2020
  2. BREO ELLIPTA [Suspect]
     Active Substance: FLUTICASONE FUROATE\VILANTEROL TRIFENATATE
     Indication: PRODUCT USED FOR UNKNOWN INDICATION
     Dosage: 1 PUFF(S), QD,100/25 ONE INHALATION
     Route: 055
     Dates: start: 2020

REACTIONS (7)
  - Product confusion [Unknown]
  - Wrong technique in device usage process [Unknown]
  - Pollakiuria [Unknown]
  - Dysuria [Recovered/Resolved]
  - Therapeutic product effect incomplete [Unknown]
  - Productive cough [Unknown]
  - Dyspnoea exertional [Unknown]
